FAERS Safety Report 8315789-9 (Version None)
Quarter: 2012Q2

REPORT INFORMATION
  Report Type: 
  Country: None (occurrence: None)
  Receive Date: 20120426
  Receipt Date: 20120412
  Transmission Date: 20120825
  Serious: Yes (Hospitalization, Other)
  Sender: FDA-Public Use
  Company Number: FR-BRISTOL-MYERS SQUIBB COMPANY-14521462

PATIENT
  Age: 75 Year
  Sex: Female

DRUGS (8)
  1. CIRKAN [Concomitant]
     Dates: end: 20061123
  2. COLCHICINE [Concomitant]
     Dates: end: 20070501
  3. SPRYCEL [Suspect]
     Indication: CHRONIC MYELOID LEUKAEMIA
     Dosage: ON 02-APR-2007: STOP OF DASATINIB RECHALLENGE OF DASATINIB ON 23-MAY-2007
     Dates: start: 20060317, end: 20081022
  4. ACETAMINOPHEN W/ PROPOXYPHENE HCL [Concomitant]
     Indication: BACK PAIN
     Dates: start: 20080101
  5. ALLOPURINOL [Concomitant]
     Dates: end: 20070101
  6. ACTONEL [Concomitant]
  7. ACTONEL [Concomitant]
  8. HYDREA [Suspect]

REACTIONS (7)
  - DYSPNOEA [None]
  - PLEURAL EFFUSION [None]
  - OSTEOPOROSIS [None]
  - PERICARDITIS [None]
  - CHOLESTASIS [None]
  - PULMONARY ARTERIAL HYPERTENSION [None]
  - SKIN DISORDER [None]
